FAERS Safety Report 8575190-X (Version None)
Quarter: 2012Q3

REPORT INFORMATION
  Report Type: 
  Country: None (occurrence: None)
  Receive Date: 20120807
  Receipt Date: 20120726
  Transmission Date: 20120928
  Serious: Yes (Hospitalization)
  Sender: FDA-Public Use
  Company Number: FR-SANOFI-AVENTIS-2012SA008313

PATIENT
  Age: 82 Year
  Sex: Female

DRUGS (2)
  1. KAYEXALATE [Suspect]
  2. IXABEPILONE [Suspect]
     Route: 042
     Dates: start: 20100602, end: 20111214

REACTIONS (2)
  - HYPERKALAEMIA [None]
  - HYPOKALAEMIA [None]
